FAERS Safety Report 19692897 (Version 2)
Quarter: 2021Q3

REPORT INFORMATION
  Report Type: Spontaneous
  Country: JP (occurrence: JP)
  Receive Date: 20210813
  Receipt Date: 20210914
  Transmission Date: 20211014
  Serious: Yes (Other)
  Sender: FDA-Public Use
  Company Number: NVSJ2021JP012037

PATIENT
  Age: 22 Year
  Sex: Male
  Weight: 54.5 kg

DRUGS (8)
  1. TEGRETOL [Suspect]
     Active Substance: CARBAMAZEPINE
     Indication: INTELLECTUAL DISABILITY
  2. LEVETIRACETAM. [Suspect]
     Active Substance: LEVETIRACETAM
     Indication: EPILEPSY
  3. IMIPRAMINE [Suspect]
     Active Substance: IMIPRAMINE
     Indication: EPILEPSY
  4. TEGRETOL [Suspect]
     Active Substance: CARBAMAZEPINE
     Indication: EPILEPSY
     Dosage: 800?1200MG (FROM THE AGE OF 15)
     Route: 048
  5. LEVETIRACETAM. [Suspect]
     Active Substance: LEVETIRACETAM
     Indication: INTELLECTUAL DISABILITY
     Dosage: 500?1500MG (FROM THE AGE OF 18)
     Route: 048
  6. VALPROATE [Suspect]
     Active Substance: VALPROIC ACID
     Indication: EPILEPSY
  7. IMIPRAMINE [Suspect]
     Active Substance: IMIPRAMINE
     Indication: INTELLECTUAL DISABILITY
     Dosage: 40?50MG/DAY (FROM THE AGE OF 13 TO 19 YEARS)
     Route: 048
  8. VALPROATE [Suspect]
     Active Substance: VALPROIC ACID
     Indication: INTELLECTUAL DISABILITY
     Dosage: 600?800MG/DAY (FROM THE AGE OF 11)
     Route: 048

REACTIONS (2)
  - Diarrhoea [Unknown]
  - Hepatic adenoma [Recovered/Resolved]
